FAERS Safety Report 4688184-1 (Version None)
Quarter: 2005Q2

REPORT INFORMATION
  Report Type: 
  Country: None (occurrence: None)
  Receive Date: 20050609
  Receipt Date: 20050602
  Transmission Date: 20051028
  Serious: Yes (Death, Other)
  Sender: FDA-Public Use
  Company Number: USA-2005-0019157

PATIENT
  Age: 28 Year
  Sex: Male
  Weight: 94.3 kg

DRUGS (5)
  1. OXYCONTIN [Suspect]
  2. HYDROMORPHONE HCL [Suspect]
  3. CITALOPRAM HYDROBROMIDE [Suspect]
  4. DIHYDROCODEINE (DIHYDROCODEINE) [Suspect]
  5. OXYMORPHONE HYDROCHLORIDE [Suspect]

REACTIONS (11)
  - ACCIDENTAL DEATH [None]
  - BRAIN HERNIATION [None]
  - BRAIN OEDEMA [None]
  - CARDIOMEGALY [None]
  - CORONARY ARTERY ATHEROSCLEROSIS [None]
  - CYANOSIS [None]
  - HEPATOSPLENOMEGALY [None]
  - MULTIPLE DRUG OVERDOSE [None]
  - PERIPHERAL COLDNESS [None]
  - PULMONARY OEDEMA [None]
  - SNORING [None]
